FAERS Safety Report 8140865-3 (Version None)
Quarter: 2012Q1

REPORT INFORMATION
  Report Type: 
  Country: None (occurrence: None)
  Receive Date: 20120216
  Receipt Date: 20120209
  Transmission Date: 20120608
  Serious: Yes (Hospitalization, Other)
  Sender: FDA-Public Use
  Company Number: GB-TEVA-303609ISR

PATIENT
  Age: 26 Year
  Sex: Female

DRUGS (4)
  1. SERTRALINE HYDROCHLORIDE [Suspect]
     Indication: MENTAL DISORDER
     Dosage: NOT STATED
     Route: 065
  2. FOLIC ACID [Concomitant]
     Indication: PROPHYLAXIS OF NEURAL TUBE DEFECT
  3. GABAPENTIN [Suspect]
     Indication: VULVOVAGINAL PAIN
     Dosage: 1800 MILLIGRAM; NOT STATED
     Route: 065
     Dates: start: 20090101, end: 20110401
  4. AMITRIPTYLINE HCL [Suspect]
     Indication: DEPRESSION
     Route: 065

REACTIONS (4)
  - MATERNAL EXPOSURE BEFORE PREGNANCY [None]
  - WITHDRAWAL SYNDROME [None]
  - PREGNANCY [None]
  - MATERNAL EXPOSURE DURING PREGNANCY [None]
